FAERS Safety Report 11259005 (Version 1)
Quarter: 2015Q3

REPORT INFORMATION
  Report Type: Spontaneous
  Country: US (occurrence: None)
  Receive Date: 20150709
  Receipt Date: 20150709
  Transmission Date: 20151125
  Serious: No
  Sender: FDA-Public Use
  Company Number: None

PATIENT
  Age: 67 Year
  Sex: Female
  Weight: 68.04 kg

DRUGS (4)
  1. PROAIR HFA [Suspect]
     Active Substance: ALBUTEROL SULFATE
     Indication: BRONCHITIS
     Dosage: 2 PUFFS EVERY 6 HOURS?FOUR TIMES DAIILY?TAKEN BY MOUTH
     Route: 048
     Dates: start: 20150702, end: 20150708
  2. ATENOLOL. [Concomitant]
     Active Substance: ATENOLOL
  3. ROBITUSSIN COUGH SYRUP [Concomitant]
  4. INHALER [Concomitant]
     Active Substance: UNSPECIFIED INGREDIENT

REACTIONS (3)
  - Drug effect incomplete [None]
  - Drug effect decreased [None]
  - Device issue [None]

NARRATIVE: CASE EVENT DATE: 20150702
